FAERS Safety Report 12867560 (Version 2)
Quarter: 2016Q4

REPORT INFORMATION
  Report Type: Spontaneous
  Country: JP (occurrence: JP)
  Receive Date: 20161020
  Receipt Date: 20161107
  Transmission Date: 20170207
  Serious: Yes (Hospitalization, Other)
  Sender: FDA-Public Use
  Company Number: JP-ASTRAZENECA-2016SF09803

PATIENT
  Age: 81 Year
  Sex: Female

DRUGS (7)
  1. MILNACIPRAN [Suspect]
     Active Substance: MILNACIPRAN
     Indication: DEPRESSION
     Route: 048
  2. AMANTADINE [Suspect]
     Active Substance: AMANTADINE
     Indication: DEPRESSION
     Route: 065
  3. ETIZOLAM [Suspect]
     Active Substance: ETIZOLAM
     Indication: DEPRESSION
     Route: 048
  4. ALPRAZOLAM. [Suspect]
     Active Substance: ALPRAZOLAM
     Indication: DEPRESSION
     Route: 048
  5. PAROXETINE. [Suspect]
     Active Substance: PAROXETINE
     Indication: DEPRESSION
     Route: 048
  6. SEROQUEL [Suspect]
     Active Substance: QUETIAPINE FUMARATE
     Indication: DEPRESSION
     Route: 048
  7. SULPIRIDE [Suspect]
     Active Substance: SULPIRIDE
     Indication: DEPRESSION
     Route: 048

REACTIONS (7)
  - Parkinsonism [Unknown]
  - Fall [Unknown]
  - Stress cardiomyopathy [Recovering/Resolving]
  - Off label use [Unknown]
  - Coronary artery occlusion [Recovering/Resolving]
  - Femoral neck fracture [Unknown]
  - Disease complication [Recovering/Resolving]

NARRATIVE: CASE EVENT DATE: 2014
